FAERS Safety Report 9981129 (Version 2)
Quarter: 2014Q1

REPORT INFORMATION
  Report Type: Spontaneous
  Country: DK (occurrence: DK)
  Receive Date: 20140307
  Receipt Date: 20140320
  Transmission Date: 20141002
  Serious: Yes (Other)
  Sender: FDA-Public Use
  Company Number: DK-ELI_LILLY_AND_COMPANY-DK201402009089

PATIENT
  Age: 48 Year
  Sex: Female

DRUGS (4)
  1. GEMZAR [Suspect]
     Indication: PRODUCT USED FOR UNKNOWN INDICATION
     Dosage: UNK
     Route: 065
     Dates: start: 20120918
  2. EPIRUBICIN [Suspect]
  3. ERIBULIN [Suspect]
     Dosage: UNK
     Dates: start: 20130829
  4. HERCEPTIN [Suspect]
     Dosage: UNK
     Dates: start: 20130829

REACTIONS (2)
  - Malignant neoplasm progression [Unknown]
  - Hepatic steatosis [Unknown]
